FAERS Safety Report 18473676 (Version 1)
Quarter: 2020Q4

REPORT INFORMATION
  Report Type: Spontaneous
  Country: GB (occurrence: GB)
  Receive Date: 20201106
  Receipt Date: 20201106
  Transmission Date: 20210114
  Serious: Yes (Other)
  Sender: FDA-Public Use
  Company Number: GB-PFIZER INC-2020430415

PATIENT
  Age: 47 Year
  Sex: Female
  Weight: 83 kg

DRUGS (9)
  1. PROPRANOLOL [Concomitant]
     Active Substance: PROPRANOLOL HYDROCHLORIDE
     Dosage: 1 DF, 1X/DAY
     Dates: start: 20190731
  2. CITALOPRAM [Concomitant]
     Active Substance: CITALOPRAM HYDROBROMIDE
     Dosage: 1 DF, 1X/DAY
     Dates: start: 20190529
  3. DIAZEPAM. [Concomitant]
     Active Substance: DIAZEPAM
     Dosage: 2 DF, 1X/DAY (MAXIMUM)
     Dates: start: 20201005, end: 20201010
  4. PIVMECILLINAM [Concomitant]
     Active Substance: AMDINOCILLIN PIVOXIL
     Dosage: 2 INITIALLY THEN ONE 3 TIMES DAILY
     Dates: start: 20201016
  5. SYLK NATURAL LUBRICANT [Concomitant]
     Dosage: UNK
     Dates: start: 20200925, end: 20201009
  6. VENLAFAXINE HCL [Suspect]
     Active Substance: VENLAFAXINE HYDROCHLORIDE
     Dosage: 75 MG, 1X/DAY
     Dates: start: 20201005
  7. ZOPICLONE [Concomitant]
     Active Substance: ZOPICLONE
     Dosage: 1 DF, 1X/DAY NIGHT
     Dates: start: 20201005, end: 20201012
  8. FLUOXETINE [Concomitant]
     Active Substance: FLUOXETINE HYDROCHLORIDE
     Dosage: 1 DF, 1X/DAYPREFERABLY IN THE MORNING
     Dates: start: 20201016
  9. NITROFURANTOIN. [Concomitant]
     Active Substance: NITROFURANTOIN
     Dosage: 2 DF, 1X/DAY
     Dates: start: 20200930, end: 20201004

REACTIONS (7)
  - Lip pain [Unknown]
  - Throat tightness [Unknown]
  - Pharyngeal paraesthesia [Unknown]
  - Paraesthesia oral [Unknown]
  - Lip swelling [Recovering/Resolving]
  - Glossodynia [Unknown]
  - Pharyngeal swelling [Unknown]

NARRATIVE: CASE EVENT DATE: 20201016
